FAERS Safety Report 17517584 (Version 1)
Quarter: 2020Q1

REPORT INFORMATION
  Report Type: Spontaneous
  Country: GB (occurrence: GB)
  Receive Date: 20200309
  Receipt Date: 20200309
  Transmission Date: 20200409
  Serious: Yes (Other)
  Sender: FDA-Public Use
  Company Number: GB-MYLANLABS-2020M1023856

PATIENT
  Age: 40 Year
  Sex: Female

DRUGS (2)
  1. CETIRIZINE [Suspect]
     Active Substance: CETIRIZINE HYDROCHLORIDE
     Indication: HYPERSENSITIVITY
     Dosage: 10 MILLIGRAM, ONCE DAILY (QD)
  2. CETIRIZINE [Suspect]
     Active Substance: CETIRIZINE HYDROCHLORIDE
     Indication: ORAL ALLERGY SYNDROME

REACTIONS (4)
  - Acute generalised exanthematous pustulosis [Recovered/Resolved]
  - Overdose [Unknown]
  - Type IV hypersensitivity reaction [Recovered/Resolved]
  - Off label use [Unknown]
